FAERS Safety Report 19817466 (Version 2)
Quarter: 2022Q1

REPORT INFORMATION
  Report Type: Spontaneous
  Country: FI (occurrence: FI)
  Receive Date: 20210910
  Receipt Date: 20220125
  Transmission Date: 20220423
  Serious: Yes (Other)
  Sender: FDA-Public Use
  Company Number: FI-BAYER-2021-205674

PATIENT

DRUGS (3)
  1. EYLEA [Suspect]
     Active Substance: AFLIBERCEPT
     Indication: Diabetic retinopathy
     Dosage: UNK
     Route: 031
     Dates: start: 2016
  2. EYLEA [Suspect]
     Active Substance: AFLIBERCEPT
     Dosage: BOTH EYES, 10 WEEKS INTERVAL, INJECTION NUMBER 70/66, LAST INJECTION PRIOR TO EVENT
     Route: 031
     Dates: start: 20210615, end: 20210615
  3. EYLEA [Suspect]
     Active Substance: AFLIBERCEPT
     Dosage: LAST INJECTION RECEIVED, 10 WEEKS INTERVAL, BOTH EYES, INJECTION NUMBER 73/69
     Route: 031
     Dates: start: 20211228

REACTIONS (2)
  - Intra-ocular injection complication [Recovering/Resolving]
  - Vision blurred [Recovering/Resolving]

NARRATIVE: CASE EVENT DATE: 20210624
